FAERS Safety Report 4557944-X (Version None)
Quarter: 2005Q1

REPORT INFORMATION
  Report Type: 
  Country: None (occurrence: None)
  Receive Date: 20050121
  Receipt Date: 20040225
  Transmission Date: 20050727
  Serious: No
  Sender: FDA-Public Use
  Company Number: US-BRISTOL-MYERS SQUIBB COMPANY-12516753

PATIENT
  Age: 41 Year
  Sex: Female

DRUGS (9)
  1. SERZONE [Suspect]
  2. ZYPREXA [Concomitant]
  3. PROZAC [Concomitant]
  4. DEPAKOTE [Concomitant]
  5. TRAZODONE HCL [Concomitant]
  6. ZOLOFT [Concomitant]
  7. EFFEXOR XR [Concomitant]
  8. PROTONIX [Concomitant]
  9. HUMULIN 70/30 [Concomitant]

REACTIONS (5)
  - ABDOMINAL PAIN [None]
  - ALANINE AMINOTRANSFERASE INCREASED [None]
  - ASPARTATE AMINOTRANSFERASE INCREASED [None]
  - BLOOD ALKALINE PHOSPHATASE INCREASED [None]
  - VOMITING [None]
